FAERS Safety Report 18661052 (Version 1)
Quarter: 2020Q4

REPORT INFORMATION
  Report Type: Spontaneous
  Country: BR (occurrence: BR)
  Receive Date: 20201224
  Receipt Date: 20201224
  Transmission Date: 20210114
  Serious: Yes (Other)
  Sender: FDA-Public Use
  Company Number: BR-SAMSUNG BIOEPIS-SB-2020-37701

PATIENT
  Age: 61 Year
  Sex: Female

DRUGS (1)
  1. BRENZYS [Suspect]
     Active Substance: ETANERCEPT
     Indication: PRODUCT USED FOR UNKNOWN INDICATION
     Dosage: UNKNOWN
     Route: 065

REACTIONS (10)
  - Pain [Unknown]
  - Foot deformity [Unknown]
  - Limb discomfort [Unknown]
  - Dysarthria [Unknown]
  - Hand deformity [Unknown]
  - Movement disorder [Unknown]
  - Product substitution issue [Unknown]
  - Feeling hot [Unknown]
  - Arthritis [Unknown]
  - Rheumatic disorder [Unknown]
